FAERS Safety Report 4318889-3 (Version None)
Quarter: 2004Q1

REPORT INFORMATION
  Report Type: 
  Country: None (occurrence: None)
  Receive Date: 20040318
  Receipt Date: 20040315
  Transmission Date: 20041129
  Serious: Yes (Hospitalization)
  Sender: FDA-Public Use
  Company Number: FR-ROCHE-361697

PATIENT
  Sex: Female
  Weight: 2.4 kg

DRUGS (4)
  1. LARIAM [Suspect]
     Indication: MALARIA
     Dates: start: 20020718, end: 20020823
  2. QUININE [Suspect]
     Indication: MALARIA
     Dates: start: 20020718, end: 20020723
  3. NIVAQUINE [Suspect]
     Indication: MALARIA PROPHYLAXIS
     Dates: start: 20020621, end: 20020704
  4. PALUDRINE [Suspect]
     Indication: MALARIA PROPHYLAXIS
     Dates: start: 20020621, end: 20020704

REACTIONS (2)
  - PREMATURE BABY [None]
  - TWIN PREGNANCY [None]
